FAERS Safety Report 16754028 (Version 1)
Quarter: 2019Q3

REPORT INFORMATION
  Report Type: Spontaneous
  Country: CH (occurrence: CH)
  Receive Date: 20190829
  Receipt Date: 20190829
  Transmission Date: 20191005
  Serious: Yes (Hospitalization)
  Sender: FDA-Public Use
  Company Number: CH-MYLANLABS-2019M1079541

PATIENT

DRUGS (2)
  1. TOREM (TORASEMIDE) [Suspect]
     Active Substance: TORSEMIDE
     Indication: PRODUCT USED FOR UNKNOWN INDICATION
     Dosage: UNK (HALF TABLET)
  2. TOREM                              /01036501/ [Suspect]
     Active Substance: TORSEMIDE
     Indication: PRODUCT USED FOR UNKNOWN INDICATION
     Dosage: UNK (HALF TABLET)

REACTIONS (4)
  - Blood creatinine increased [Unknown]
  - Hypokalaemia [Unknown]
  - Product prescribing error [Unknown]
  - Accidental overdose [Unknown]
